FAERS Safety Report 22053325 (Version 1)
Quarter: 2023Q1

REPORT INFORMATION
  Report Type: Spontaneous
  Country: EG (occurrence: EG)
  Receive Date: 20230302
  Receipt Date: 20230302
  Transmission Date: 20230417
  Serious: Yes (Death, Other)
  Sender: FDA-Public Use
  Company Number: EG-MYLANLABS-2023M1022545

PATIENT
  Age: 22 Year
  Sex: Male

DRUGS (5)
  1. ARIXTRA [Suspect]
     Active Substance: FONDAPARINUX SODIUM
     Indication: Anticoagulant therapy
     Dosage: 2.5 MILLIGRAM, QD (2.5 MG, 1 DOSE 24 HOURS)
     Route: 058
     Dates: start: 20220426, end: 20220509
  2. CILASTATIN SODIUM\IMIPENEM [Suspect]
     Active Substance: CILASTATIN SODIUM\IMIPENEM
     Indication: Antibiotic therapy
     Dosage: 1 GRAM, Q8H (1 G, 1 DOSE 8 HOURS)
     Route: 042
     Dates: start: 20220426, end: 20220509
  3. VANCOMYCIN [Suspect]
     Active Substance: VANCOMYCIN
     Indication: Antibiotic therapy
     Dosage: 1 GRAM, BID (1 G, 1 DOSE 12 HOURS)
     Route: 042
     Dates: start: 20220426, end: 20220509
  4. MEROPENEM [Concomitant]
     Active Substance: MEROPENEM
     Indication: Antibiotic therapy
     Dosage: 1 GRAM, Q8H (1 GM EVERY 8 HOURS)
     Route: 042
  5. INDOMETHACIN SODIUM [Concomitant]
     Active Substance: INDOMETHACIN SODIUM
     Indication: Analgesic therapy
     Dosage: UNK (EVERY 12 HOURS)
     Route: 042

REACTIONS (1)
  - Pancytopenia [Fatal]

NARRATIVE: CASE EVENT DATE: 20220503
